FAERS Safety Report 11422759 (Version 2)
Quarter: 2015Q4

REPORT INFORMATION
  Report Type: Report from Study
  Country: US (occurrence: US)
  Receive Date: 20150827
  Receipt Date: 20151005
  Transmission Date: 20160304
  Serious: Yes (Other)
  Sender: FDA-Public Use
  Company Number: PHEH2015US016250

PATIENT
  Sex: Male

DRUGS (3)
  1. GLEEVEC [Suspect]
     Active Substance: IMATINIB MESYLATE
     Indication: GASTROINTESTINAL STROMAL TUMOUR
     Dosage: UNK
     Route: 065
  2. ADVIL [Concomitant]
     Active Substance: IBUPROFEN
     Indication: PRODUCT USED FOR UNKNOWN INDICATION
     Dosage: 1000 MG, UNK
     Route: 065
  3. GLEEVEC [Suspect]
     Active Substance: IMATINIB MESYLATE
     Dosage: 400 MG, TWICE DAILY
     Route: 065

REACTIONS (18)
  - Malignant neoplasm progression [Unknown]
  - Ligament sprain [Unknown]
  - Arthralgia [Unknown]
  - Lip swelling [Unknown]
  - Diarrhoea [Unknown]
  - Visual acuity reduced [Unknown]
  - Lip swelling [Recovered/Resolved]
  - Mouth swelling [Unknown]
  - Back pain [Unknown]
  - Nausea [Unknown]
  - Malaise [Unknown]
  - Dizziness [Not Recovered/Not Resolved]
  - Gastrointestinal stromal tumour [Unknown]
  - Feeling abnormal [Unknown]
  - Eye swelling [Unknown]
  - Product packaging issue [Unknown]
  - Blood blister [Not Recovered/Not Resolved]
  - Somnolence [Unknown]
